FAERS Safety Report 5492864-8 (Version None)
Quarter: 2007Q4

REPORT INFORMATION
  Report Type: 
  Country: None (occurrence: None)
  Receive Date: 20071023
  Receipt Date: 20070604
  Transmission Date: 20080405
  Serious: No
  Sender: FDA-Public Use
  Company Number: US-BRISTOL-MYERS SQUIBB COMPANY-13802491

PATIENT
  Sex: Male

DRUGS (3)
  1. BUSPAR [Suspect]
     Indication: ANXIETY
     Route: 048
  2. BUSPAR [Suspect]
     Indication: DEPRESSION
     Route: 048
  3. LEXAPRO [Concomitant]

REACTIONS (1)
  - MALAISE [None]
